FAERS Safety Report 4896170-1 (Version None)
Quarter: 2006Q1

REPORT INFORMATION
  Report Type: 
  Country: None (occurrence: None)
  Receive Date: 20060131
  Receipt Date: 20060124
  Transmission Date: 20060701
  Serious: Yes (Hospitalization)
  Sender: FDA-Public Use
  Company Number: DE-BOEHRINGER INGELHEIM PHARMACEUTICALS, INC.-2006-DE-00414DE

PATIENT
  Sex: Male

DRUGS (2)
  1. MICARDIS [Suspect]
     Route: 048
  2. CONCOR [Concomitant]

REACTIONS (1)
  - HAEMOLYTIC ANAEMIA [None]
